FAERS Safety Report 24608284 (Version 1)
Quarter: 2024Q4

REPORT INFORMATION
  Report Type: Spontaneous
  Country: CN (occurrence: CN)
  Receive Date: 20241112
  Receipt Date: 20241112
  Transmission Date: 20250115
  Serious: Yes (Other)
  Sender: PFIZER
  Company Number: CN-PFIZER INC-PV202400145244

PATIENT
  Age: 25 Year
  Sex: Male
  Weight: 74 kg

DRUGS (3)
  1. CYTARABINE [Suspect]
     Active Substance: CYTARABINE
     Indication: Leukaemia
     Dosage: 1 G, 2X/DAY
     Route: 041
     Dates: start: 20241010, end: 20241010
  2. CYTARABINE [Suspect]
     Active Substance: CYTARABINE
     Dosage: 1 G, 2X/DAY
     Route: 041
     Dates: end: 20241012
  3. SODIUM CHLORIDE [Concomitant]
     Active Substance: SODIUM CHLORIDE
     Indication: Vehicle solution use
     Dosage: 500 ML, 2X/DAY
     Route: 041
     Dates: start: 20241010, end: 20241012

REACTIONS (1)
  - Drug-induced liver injury [Unknown]

NARRATIVE: CASE EVENT DATE: 20241013
